FAERS Safety Report 4708957-6 (Version None)
Quarter: 2005Q3

REPORT INFORMATION
  Report Type: 
  Country: None (occurrence: None)
  Receive Date: 20050707
  Receipt Date: 20050628
  Transmission Date: 20060218
  Serious: Yes (Other)
  Sender: FDA-Public Use
  Company Number: TPA2005A00710

PATIENT
  Age: 64 Year
  Sex: Female
  Weight: 83.0083 kg

DRUGS (4)
  1. ACTOS [Suspect]
     Indication: DIABETES MELLITUS NON-INSULIN-DEPENDENT
     Dosage: 30 MG , 1 IN 1 D, PER ORAL
     Route: 048
     Dates: start: 20050508, end: 20050509
  2. ZETIA [Concomitant]
     Dates: end: 20050509
  3. FLONASE [Concomitant]
  4. AVANDIA [Concomitant]

REACTIONS (6)
  - ANGIONEUROTIC OEDEMA [None]
  - BLOOD IMMUNOGLOBULIN E INCREASED [None]
  - DERMOGRAPHISM [None]
  - DRUG INTERACTION [None]
  - RASH [None]
  - THROAT TIGHTNESS [None]
